FAERS Safety Report 9492927 (Version 1)
Quarter: 2013Q3

REPORT INFORMATION
  Report Type: Spontaneous
  Country: PT (occurrence: PT)
  Receive Date: 20130902
  Receipt Date: 20130902
  Transmission Date: 20140515
  Serious: Yes (Disabling)
  Sender: FDA-Public Use
  Company Number: PT-AMGEN-PRTSP2013061274

PATIENT
  Age: 33 Year
  Sex: Male

DRUGS (2)
  1. ENBREL [Suspect]
     Indication: PSORIASIS
     Dosage: 50 MG, WEEKLY
     Route: 058
     Dates: start: 20130813
  2. ISONIAZID [Concomitant]
     Indication: ANTIBIOTIC PROPHYLAXIS
     Dosage: UNK

REACTIONS (1)
  - Dizziness [Recovered/Resolved]
